FAERS Safety Report 6161763-0 (Version None)
Quarter: 2009Q2

REPORT INFORMATION
  Report Type: 
  Country: None (occurrence: None)
  Receive Date: 20090417
  Receipt Date: 20090417
  Transmission Date: 20091009
  Serious: Yes (Hospitalization, Other)
  Sender: FDA-Public Use
  Company Number: None

PATIENT
  Age: 27 Year
  Sex: Female
  Weight: 56.6996 kg

DRUGS (1)
  1. ALDARA [Suspect]
     Indication: ANOGENITAL WARTS
     Dosage: 1 PACKET 3 X'S WEEKLY TOP
     Route: 061
     Dates: start: 20090307, end: 20090309

REACTIONS (13)
  - ABASIA [None]
  - APPLICATION SITE PAIN [None]
  - CHILLS [None]
  - HERPES VIRUS INFECTION [None]
  - IMPAIRED HEALING [None]
  - INFLUENZA LIKE ILLNESS [None]
  - MIGRAINE [None]
  - MUSCULOSKELETAL STIFFNESS [None]
  - PAIN [None]
  - PYREXIA [None]
  - SWELLING [None]
  - VAGINAL ULCERATION [None]
  - WRONG TECHNIQUE IN DRUG USAGE PROCESS [None]
